FAERS Safety Report 9928789 (Version 2)
Quarter: 2014Q1

REPORT INFORMATION
  Report Type: Spontaneous
  Country: GB (occurrence: GB)
  Receive Date: 20140227
  Receipt Date: 20140325
  Transmission Date: 20141002
  Serious: Yes (Life-Threatening, Hospitalization, Other)
  Sender: FDA-Public Use
  Company Number: GB-PFIZER INC-2014053567

PATIENT
  Sex: Female

DRUGS (2)
  1. LYRICA [Suspect]
     Indication: FALL
     Dosage: UNK
  2. CO-CODAMOL [Interacting]
     Indication: FALL
     Dosage: UNK

REACTIONS (4)
  - Drug interaction [Unknown]
  - Cardiac arrest [Recovered/Resolved]
  - Large intestine perforation [Recovered/Resolved with Sequelae]
  - Ileus paralytic [Unknown]
